FAERS Safety Report 16393636 (Version 1)
Quarter: 2019Q2

REPORT INFORMATION
  Report Type: Spontaneous
  Country: US (occurrence: US)
  Receive Date: 20190605
  Receipt Date: 20190605
  Transmission Date: 20190711
  Serious: No
  Sender: FDA-Public Use
  Company Number: US-PFIZER INC-2019237150

PATIENT
  Age: 36 Year
  Sex: Female

DRUGS (2)
  1. DOXYCYCLINE. [Suspect]
     Active Substance: DOXYCYCLINE
     Indication: LYME DISEASE
     Dosage: 100 MG, 2X/DAY
     Route: 048
     Dates: start: 20190128, end: 20190428
  2. ADVIL [Suspect]
     Active Substance: IBUPROFEN
     Dosage: UNK UNK, AS NEEDED, [PRN]
     Dates: end: 201904

REACTIONS (2)
  - Laboratory test abnormal [Unknown]
  - Drug ineffective [Unknown]

NARRATIVE: CASE EVENT DATE: 201904
